FAERS Safety Report 4283412-9 (Version None)
Quarter: 2004Q1

REPORT INFORMATION
  Report Type: 
  Country: None (occurrence: None)
  Receive Date: 20040129
  Receipt Date: 20040129
  Transmission Date: 20041129
  Serious: Yes (Hospitalization)
  Sender: FDA-Public Use
  Company Number: None

PATIENT
  Age: 40 Year
  Sex: Female
  Weight: 75.8 kg

DRUGS (1)
  1. PYRIDOSTIGMINE BROMIDE [Suspect]
     Indication: MYASTHENIA GRAVIS
     Dosage: 60 MG PO TID
     Route: 048

REACTIONS (7)
  - ANXIETY [None]
  - DROOLING [None]
  - DYSARTHRIA [None]
  - DYSPNOEA [None]
  - MIOSIS [None]
  - OVERDOSE [None]
  - TACHYCARDIA [None]
